FAERS Safety Report 6662936-0 (Version None)
Quarter: 2010Q2

REPORT INFORMATION
  Report Type: 
  Country: None (occurrence: None)
  Receive Date: 20100401
  Receipt Date: 20100323
  Transmission Date: 20101027
  Serious: Yes (Hospitalization)
  Sender: FDA-Public Use
  Company Number: US-JNJFOC-20100306854

PATIENT
  Age: 57 Year
  Sex: Female

DRUGS (2)
  1. TOPAMAX [Suspect]
     Indication: DRUG USE FOR UNKNOWN INDICATION
     Route: 048
  2. AVONEX [Suspect]
     Indication: MULTIPLE SCLEROSIS
     Route: 065

REACTIONS (1)
  - HOSPITALISATION [None]
